FAERS Safety Report 5774397-4 (Version None)
Quarter: 2008Q2

REPORT INFORMATION
  Report Type: 
  Country: None (occurrence: None)
  Receive Date: 20080616
  Receipt Date: 20080611
  Transmission Date: 20081010
  Serious: Yes (Other)
  Sender: FDA-Public Use
  Company Number: GB-ASTRAZENECA-2008AC01507

PATIENT

DRUGS (5)
  1. LIDOCAINE [Suspect]
     Indication: ANAESTHESIA
     Dosage: LIDOCAINE 5% + PHENYLEPHRINE 0.5% 2 ML TO NOSE
  2. LIDOCAINE [Suspect]
     Dosage: NEBULISED LIDOCAINE 4% (200MG)
  3. SPRAY AS YOU GO LIDOCAINE [Suspect]
     Indication: ANAESTHESIA
  4. GLYCOPYRROLATE [Concomitant]
     Indication: ANAESTHESIA
     Dosage: 3-4 UG/KG
     Route: 042
  5. XYLOMETAZOLINE [Concomitant]
     Indication: ANAESTHESIA
     Route: 045

REACTIONS (1)
  - PARAESTHESIA [None]
